FAERS Safety Report 6385705-8 (Version None)
Quarter: 2009Q4

REPORT INFORMATION
  Report Type: 
  Country: None (occurrence: None)
  Receive Date: 20091002
  Receipt Date: 20080930
  Transmission Date: 20100525
  Serious: No
  Sender: FDA-Public Use
  Company Number: US-ASTRAZENECA-2008UW20789

PATIENT
  Age: 80 Year
  Sex: Female

DRUGS (6)
  1. ARIMIDEX [Suspect]
     Route: 048
     Dates: start: 20070101
  2. CARDIA XT [Concomitant]
  3. TOPROL-XL [Concomitant]
     Route: 048
  4. GLUCOTROL [Concomitant]
  5. GLUCOTROL [Concomitant]
  6. ISMO [Concomitant]

REACTIONS (4)
  - ARTHRITIS [None]
  - BLOOD CHOLESTEROL INCREASED [None]
  - BLOOD GLUCOSE INCREASED [None]
  - FALL [None]
